FAERS Safety Report 9110576 (Version 2)
Quarter: 2014Q1

REPORT INFORMATION
  Report Type: Spontaneous
  Country: US (occurrence: US)
  Receive Date: 20130219
  Receipt Date: 20140213
  Transmission Date: 20141002
  Serious: No
  Sender: FDA-Public Use
  Company Number: US-BRISTOL-MYERS SQUIBB COMPANY-16966939

PATIENT
  Age: 23 Year
  Sex: Female

DRUGS (1)
  1. ORENCIA [Suspect]
     Dosage: LAST INF ON JAN13 OR FEB13
     Route: 042

REACTIONS (5)
  - Drug ineffective [Unknown]
  - Fatigue [Unknown]
  - Influenza [Unknown]
  - Infection [Unknown]
  - Fatigue [Unknown]
